FAERS Safety Report 6165088-9 (Version None)
Quarter: 2009Q2

REPORT INFORMATION
  Report Type: 
  Country: None (occurrence: None)
  Receive Date: 20090421
  Receipt Date: 20090421
  Transmission Date: 20091009
  Serious: Yes (Hospitalization)
  Sender: FDA-Public Use
  Company Number: None

PATIENT
  Age: 82 Year
  Sex: Male
  Weight: 123.6 kg

DRUGS (2)
  1. SPIRONOLACTONE [Suspect]
     Dosage: 50MG TWICE DAILY PO
     Route: 048
  2. K-CAP [Suspect]
     Dosage: 40MEQ THREE TIMES DAILY PO
     Route: 048

REACTIONS (2)
  - BLOOD POTASSIUM INCREASED [None]
  - FEELING ABNORMAL [None]
